FAERS Safety Report 9626763 (Version 1)
Quarter: 2013Q4

REPORT INFORMATION
  Report Type: Spontaneous
  Country: US (occurrence: US)
  Receive Date: 20131016
  Receipt Date: 20131016
  Transmission Date: 20140711
  Serious: Yes (Other)
  Sender: FDA-Public Use
  Company Number: US-GLAXOSMITHKLINE-A1045441A

PATIENT
  Sex: Female

DRUGS (1)
  1. PAXIL [Suspect]
     Indication: PRODUCT USED FOR UNKNOWN INDICATION
     Route: 065

REACTIONS (25)
  - Suicidal ideation [Unknown]
  - Hypertension [Unknown]
  - Withdrawal syndrome [Unknown]
  - Breast pain [Unknown]
  - Muscle spasms [Unknown]
  - Nausea [Unknown]
  - Sleep disorder [Unknown]
  - Disturbance in attention [Unknown]
  - Muscle twitching [Unknown]
  - Dizziness [Unknown]
  - Headache [Unknown]
  - Hot flush [Unknown]
  - Heart rate increased [Unknown]
  - Irritability [Unknown]
  - Mood swings [Unknown]
  - Depression [Unknown]
  - Anaemia [Unknown]
  - Vision blurred [Unknown]
  - Tinnitus [Unknown]
  - Night sweats [Unknown]
  - Fatigue [Unknown]
  - Dry mouth [Unknown]
  - Hallucination [Unknown]
  - Arthralgia [Unknown]
  - Exposure during pregnancy [Unknown]
